FAERS Safety Report 21521639 (Version 2)
Quarter: 2023Q2

REPORT INFORMATION
  Report Type: Report from Study
  Country: US (occurrence: US)
  Receive Date: 20221028
  Receipt Date: 20230511
  Transmission Date: 20230721
  Serious: Yes (Hospitalization, Other)
  Sender: FDA-Public Use
  Company Number: US-TAKEDA-2022TUS041362

PATIENT
  Age: 31 Year
  Sex: Female
  Weight: 52 kg

DRUGS (3)
  1. BRIGATINIB [Suspect]
     Active Substance: BRIGATINIB
     Indication: Neurofibromatosis
     Dosage: 180 MILLIGRAM, QD
     Route: 048
     Dates: start: 202202, end: 20221010
  2. DEXAMETHASONE [Concomitant]
     Active Substance: DEXAMETHASONE
     Dosage: 4 MILLIGRAM
     Route: 065
  3. RITALIN [Concomitant]
     Active Substance: METHYLPHENIDATE HYDROCHLORIDE
     Dosage: UNK
     Route: 065

REACTIONS (4)
  - Septic shock [Recovering/Resolving]
  - Infection [Unknown]
  - Moaning [Unknown]
  - Off label use [Unknown]

NARRATIVE: CASE EVENT DATE: 20221011
